FAERS Safety Report 12714042 (Version 2)
Quarter: 2016Q3

REPORT INFORMATION
  Report Type: Spontaneous
  Country: IT (occurrence: IT)
  Receive Date: 20160905
  Receipt Date: 20160916
  Transmission Date: 20161109
  Serious: Yes (Other)
  Sender: FDA-Public Use
  Company Number: IT-ROCHE-1825170

PATIENT
  Age: 30 Year
  Sex: Female
  Weight: 54 kg

DRUGS (1)
  1. AVASTIN [Suspect]
     Active Substance: BEVACIZUMAB
     Indication: SEROUS CYSTADENOCARCINOMA OVARY
     Dosage: 1 X 100 MG VIAL
     Route: 042
     Dates: start: 20150326

REACTIONS (1)
  - Haemangioma [Unknown]

NARRATIVE: CASE EVENT DATE: 20160422
